FAERS Safety Report 5045749-5 (Version None)
Quarter: 2006Q2

REPORT INFORMATION
  Report Type: 
  Country: None (occurrence: None)
  Receive Date: 20060601
  Receipt Date: 20060412
  Transmission Date: 20061013
  Serious: No
  Sender: FDA-Public Use
  Company Number: 2006-BP-04224BP

PATIENT
  Sex: Male

DRUGS (4)
  1. SPIRIVA [Suspect]
     Indication: CHRONIC OBSTRUCTIVE PULMONARY DISEASE
     Dosage: 18 MG (18 MG),IH
     Dates: start: 20050101
  2. ASTHMATIC [Concomitant]
  3. FLORIDIL [Concomitant]
  4. ALBUTEROL SPIROS [Concomitant]

REACTIONS (1)
  - AGEUSIA [None]
